FAERS Safety Report 7864756-8 (Version None)
Quarter: 2011Q4

REPORT INFORMATION
  Report Type: 
  Country: None (occurrence: None)
  Receive Date: 20111028
  Receipt Date: 20111017
  Transmission Date: 20120403
  Serious: Yes (Other)
  Sender: FDA-Public Use
  Company Number: IT-ELI_LILLY_AND_COMPANY-IT201110004878

PATIENT
  Age: 46 Year
  Sex: Female

DRUGS (3)
  1. CYMBALTA [Suspect]
     Dosage: 60 MG, QOD
     Dates: start: 20110901
  2. CYMBALTA [Suspect]
     Dosage: 60 MG, UNK
     Dates: start: 20101001, end: 20110901
  3. CYMBALTA [Suspect]
     Dosage: 30 MG, QOD
     Dates: start: 20110901

REACTIONS (3)
  - NEUROPATHY PERIPHERAL [None]
  - FEMALE ORGASMIC DISORDER [None]
  - PARAESTHESIA [None]
